FAERS Safety Report 18587141 (Version 1)
Quarter: 2020Q4

REPORT INFORMATION
  Report Type: Report from Study
  Country: ES (occurrence: ES)
  Receive Date: 20201207
  Receipt Date: 20201207
  Transmission Date: 20210114
  Serious: Yes (Hospitalization)
  Sender: FDA-Public Use
  Company Number: ES-ROCHE-2717983

PATIENT
  Age: 69 Year
  Sex: Female
  Weight: 63 kg

DRUGS (15)
  1. PRAVAFENIX [Concomitant]
     Active Substance: FENOFIBRATE\PRAVASTATIN
     Indication: DYSLIPIDAEMIA
     Route: 048
  2. HEIPRAM [Concomitant]
     Active Substance: ESCITALOPRAM OXALATE
     Indication: MIXED ANXIETY AND DEPRESSIVE DISORDER
     Route: 048
  3. ETOPOSIDE. [Suspect]
     Active Substance: ETOPOSIDE
     Indication: SMALL CELL LUNG CANCER EXTENSIVE STAGE
     Dosage: ON 09/OCT/2020, RECEIVED THE LAST DOSE (170 MG) PRIOR TO ADVERSE EVENT ONSET
     Route: 042
     Dates: start: 20200806
  4. REXER [Concomitant]
     Active Substance: MIRTAZAPINE
     Indication: MIXED ANXIETY AND DEPRESSIVE DISORDER
     Route: 048
  5. FORXIGA [Concomitant]
     Active Substance: DAPAGLIFLOZIN
     Indication: DIABETES MELLITUS
     Route: 048
  6. LIMOVAN (SPAIN) [Concomitant]
     Indication: MIXED ANXIETY AND DEPRESSIVE DISORDER
     Route: 048
  7. NEXIUM [Concomitant]
     Active Substance: ESOMEPRAZOLE MAGNESIUM
     Indication: DYSLIPIDAEMIA
     Route: 048
  8. METAMIZOLE [Concomitant]
     Active Substance: METAMIZOLE
     Route: 048
     Dates: start: 20201007
  9. XELEVIA [Concomitant]
     Active Substance: SITAGLIPTIN PHOSPHATE
     Indication: DIABETES MELLITUS
     Route: 048
  10. PRANDIN (SPAIN) [Concomitant]
     Indication: DIABETES MELLITUS
     Route: 048
  11. THIAMAZOLE [Concomitant]
     Active Substance: METHIMAZOLE
     Indication: HYPERTHYROIDISM
     Route: 048
     Dates: start: 20201007
  12. METAMIZOLE [Concomitant]
     Active Substance: METAMIZOLE
     Indication: NECK PAIN
     Route: 048
     Dates: start: 20201006, end: 20201006
  13. ATEZOLIZUMAB. [Suspect]
     Active Substance: ATEZOLIZUMAB
     Indication: SMALL CELL LUNG CANCER EXTENSIVE STAGE
     Dosage: ON 07/OCT/2020, RECEIVED THE LAST DOSE PRIOR TO ADVERSE EVENT ONSET
     Route: 041
     Dates: start: 20200806
  14. CARBOPLATIN. [Suspect]
     Active Substance: CARBOPLATIN
     Indication: SMALL CELL LUNG CANCER EXTENSIVE STAGE
     Dosage: 5 MG/ML/MIN?ON 07/OCT/2020, RECEIVED THE LAST DOSE (570 MG) PRIOR TO ADVERSE EVENT ONSET
     Route: 042
     Dates: start: 20200806
  15. HIBOR [Concomitant]
     Route: 058

REACTIONS (1)
  - Immune-mediated myositis [Recovered/Resolved with Sequelae]

NARRATIVE: CASE EVENT DATE: 20201118
